FAERS Safety Report 16588864 (Version 2)
Quarter: 2022Q1

REPORT INFORMATION
  Report Type: Spontaneous
  Country: CH (occurrence: CH)
  Receive Date: 20190718
  Receipt Date: 20220202
  Transmission Date: 20220423
  Serious: Yes (Other)
  Sender: FDA-Public Use
  Company Number: None

PATIENT
  Age: 24 Year
  Sex: Female

DRUGS (7)
  1. DOXYCYCLINE [Suspect]
     Active Substance: DOXYCYCLINE
     Indication: Acne
     Route: 048
     Dates: start: 20180108, end: 20180116
  2. PHENPROCOUMON [Suspect]
     Active Substance: PHENPROCOUMON
     Indication: Antiphospholipid syndrome
     Dosage: DOSAGE ACCORDING TO INR
     Route: 048
     Dates: start: 2011, end: 201808
  3. PLAQUENIL [Suspect]
     Active Substance: HYDROXYCHLOROQUINE SULFATE
     Indication: Systemic lupus erythematosus
     Route: 048
     Dates: start: 201705
  4. SINTROM [Suspect]
     Active Substance: ACENOCOUMAROL
     Dosage: DOSE ACCORDING TO INR (3-5 MG DAILY)
     Route: 048
     Dates: start: 20180912, end: 201811
  5. PANTOPRAZOLE SODIUM [Concomitant]
     Active Substance: PANTOPRAZOLE SODIUM
     Indication: Product used for unknown indication
     Route: 048
  6. ENOXAPARIN SODIUM [Concomitant]
     Active Substance: ENOXAPARIN SODIUM
     Dosage: 100 MG/1 ML TWICE DAILY
     Route: 058
     Dates: start: 201808, end: 201809
  7. ELIQUIS [Concomitant]
     Active Substance: APIXABAN
     Dosage: 5 MG 1-0-1-0 (EXACT DATE UNKNOWN)
     Route: 048
     Dates: start: 201811

REACTIONS (2)
  - Hepatic enzyme increased [Recovered/Resolved]
  - Drug-induced liver injury [Recovered/Resolved]

NARRATIVE: CASE EVENT DATE: 20171024
